FAERS Safety Report 13510303 (Version 3)
Quarter: 2017Q3

REPORT INFORMATION
  Report Type: Spontaneous
  Country: US (occurrence: US)
  Receive Date: 20170503
  Receipt Date: 20170811
  Transmission Date: 20171127
  Serious: No
  Sender: FDA-Public Use
  Company Number: US-STRONGBRIDGE BIOPHARMA-SR-KEV-2017-003

PATIENT
  Sex: Male

DRUGS (1)
  1. KEVEYIS [Suspect]
     Active Substance: DICHLORPHENAMIDE
     Indication: MUSCULAR WEAKNESS
     Dosage: 50MG-100MG
     Route: 065
     Dates: start: 201702

REACTIONS (2)
  - Drug effect variable [Unknown]
  - Drug ineffective [Unknown]
